FAERS Safety Report 26013454 (Version 1)
Quarter: 2025Q4

REPORT INFORMATION
  Report Type: Spontaneous
  Country: US (occurrence: US)
  Receive Date: 20251107
  Receipt Date: 20251107
  Transmission Date: 20260117
  Serious: No
  Sender: PFIZER
  Company Number: US-PFIZER INC-PV202500130095

PATIENT
  Age: 60 Year
  Sex: Female

DRUGS (1)
  1. XELJANZ XR [Suspect]
     Active Substance: TOFACITINIB CITRATE
     Indication: Rheumatoid arthritis
     Dosage: UNK, 1X/DAY
     Route: 048
     Dates: start: 20251006

REACTIONS (4)
  - Sinusitis [Unknown]
  - Headache [Unknown]
  - Oropharyngeal pain [Unknown]
  - Arthritis [Unknown]

NARRATIVE: CASE EVENT DATE: 20251001
